FAERS Safety Report 6078416-X (Version None)
Quarter: 2009Q1

REPORT INFORMATION
  Report Type: 
  Country: None (occurrence: None)
  Receive Date: 20090212
  Receipt Date: 20090205
  Transmission Date: 20090719
  Serious: Yes (Hospitalization, Other)
  Sender: FDA-Public Use
  Company Number: TPA2009A00192

PATIENT
  Age: 59 Year
  Sex: Male
  Weight: 122.4712 kg

DRUGS (14)
  1. ACTOS [Suspect]
     Indication: DIABETES MELLITUS
     Dosage: 45 MG, 1 IN 1 D, PER ORAL, 15 MG, 1 IN `1 D, PER ORAL, 45 MG, 1 IN 1 D, ORAL
     Route: 048
     Dates: start: 20060801, end: 20081201
  2. ACTOS [Suspect]
     Indication: INSULIN RESISTANCE
     Dosage: 45 MG, 1 IN 1 D, PER ORAL, 15 MG, 1 IN `1 D, PER ORAL, 45 MG, 1 IN 1 D, ORAL
     Route: 048
     Dates: start: 20060801, end: 20081201
  3. ACTOS [Suspect]
     Indication: DIABETES MELLITUS
     Dosage: 45 MG, 1 IN 1 D, PER ORAL, 15 MG, 1 IN `1 D, PER ORAL, 45 MG, 1 IN 1 D, ORAL
     Route: 048
     Dates: start: 20081201, end: 20081224
  4. ACTOS [Suspect]
     Indication: INSULIN RESISTANCE
     Dosage: 45 MG, 1 IN 1 D, PER ORAL, 15 MG, 1 IN `1 D, PER ORAL, 45 MG, 1 IN 1 D, ORAL
     Route: 048
     Dates: start: 20081201, end: 20081224
  5. ACTOS [Suspect]
     Indication: DIABETES MELLITUS
     Dosage: 45 MG, 1 IN 1 D, PER ORAL, 15 MG, 1 IN `1 D, PER ORAL, 45 MG, 1 IN 1 D, ORAL
     Route: 048
     Dates: start: 20081201
  6. ACTOS [Suspect]
     Indication: INSULIN RESISTANCE
     Dosage: 45 MG, 1 IN 1 D, PER ORAL, 15 MG, 1 IN `1 D, PER ORAL, 45 MG, 1 IN 1 D, ORAL
     Route: 048
     Dates: start: 20081201
  7. NIACIN [Concomitant]
  8. METFORMIN HCL [Concomitant]
  9. DILTIAZEM [Concomitant]
  10. CLONIDINE [Concomitant]
  11. COZAAR [Concomitant]
  12. TRIAMTERENE AND HYDROCHLOROTHIAZIDE [Concomitant]
  13. ASPIRIN [Concomitant]
  14. INSULIN (INSULIN) [Concomitant]

REACTIONS (8)
  - ASTHENIA [None]
  - BLOOD CHOLESTEROL INCREASED [None]
  - BLOOD GLUCOSE INCREASED [None]
  - BLOOD PRESSURE DIASTOLIC DECREASED [None]
  - BLOOD TRIGLYCERIDES INCREASED [None]
  - JAUNDICE [None]
  - PANCREATITIS [None]
  - WEIGHT INCREASED [None]
